FAERS Safety Report 6320717-1 (Version None)
Quarter: 2009Q3

REPORT INFORMATION
  Report Type: 
  Country: None (occurrence: None)
  Receive Date: 20090822
  Receipt Date: 20081203
  Transmission Date: 20100115
  Serious: No
  Sender: FDA-Public Use
  Company Number: US-ABBOTT-08P-163-0491258-00

PATIENT
  Sex: Male

DRUGS (9)
  1. NIASPAN [Suspect]
     Indication: DRUG USE FOR UNKNOWN INDICATION
  2. SIMCOR [Suspect]
     Indication: DRUG USE FOR UNKNOWN INDICATION
     Dosage: 500/20, 1 WEEK
     Dates: start: 20081112
  3. SIMCOR [Suspect]
     Dosage: 1000/20
     Dates: start: 20081101
  4. METFORMIN [Concomitant]
     Indication: DRUG USE FOR UNKNOWN INDICATION
  5. TETERNA [Concomitant]
     Indication: DRUG USE FOR UNKNOWN INDICATION
  6. INDEPRAMIDE [Concomitant]
     Indication: DRUG USE FOR UNKNOWN INDICATION
  7. KLOR-CON [Concomitant]
     Indication: DRUG USE FOR UNKNOWN INDICATION
  8. BENICAR [Concomitant]
     Indication: DRUG USE FOR UNKNOWN INDICATION
  9. CARDIZEM [Concomitant]
     Indication: DRUG USE FOR UNKNOWN INDICATION

REACTIONS (2)
  - FLUSHING [None]
  - FORMICATION [None]
